FAERS Safety Report 4401707-2 (Version None)
Quarter: 2004Q3

REPORT INFORMATION
  Report Type: 
  Country: None (occurrence: None)
  Receive Date: 20040719
  Receipt Date: 20040707
  Transmission Date: 20050211
  Serious: Yes (Hospitalization)
  Sender: FDA-Public Use
  Company Number: US-BRISTOL-MYERS SQUIBB COMPANY-12633749

PATIENT
  Age: 69 Year
  Sex: Male
  Weight: 94 kg

DRUGS (16)
  1. WARFARIN SODIUM [Suspect]
     Indication: INTRACARDIAC THROMBUS
     Dates: start: 20030201, end: 20031128
  2. PLAVIX [Suspect]
     Dates: start: 20031027
  3. ANGIOMAX [Suspect]
     Indication: ANTICOAGULANT THERAPY
     Dosage: 71.5 BOLUS IV GIVEN, THEN INFUSION OF 33 ML/HR.
     Route: 042
     Dates: start: 20031027, end: 20031027
  4. GLYBURIDE [Concomitant]
  5. PREVACID [Concomitant]
  6. SYNTHROID [Concomitant]
  7. ASPIRIN [Concomitant]
  8. AMIODARONE HCL [Concomitant]
  9. HYDRALAZINE [Concomitant]
  10. POTASSIUM CHLORURE [Concomitant]
  11. IMDUR [Concomitant]
  12. ALLOPURINOL [Concomitant]
  13. PRAVACHOL [Concomitant]
  14. NITROGLYCERIN [Concomitant]
  15. LASIX [Concomitant]
  16. COREG [Concomitant]

REACTIONS (2)
  - ANAEMIA [None]
  - CHEST DISCOMFORT [None]
